FAERS Safety Report 5574458-9 (Version None)
Quarter: 2007Q4

REPORT INFORMATION
  Report Type: 
  Country: None (occurrence: None)
  Receive Date: 20071226
  Receipt Date: 20071226
  Transmission Date: 20080405
  Serious: Yes (Other)
  Sender: FDA-Public Use
  Company Number: None

PATIENT
  Age: 58 Year
  Sex: Male
  Weight: 108.8633 kg

DRUGS (2)
  1. UROXATRAL [Suspect]
     Indication: POLLAKIURIA
     Dosage: 1 TABLET  DAILY  PO
     Route: 048
     Dates: start: 20071219, end: 20071219
  2. UROXATRAL [Suspect]
     Indication: URINE FLOW DECREASED
     Dosage: 1 TABLET  DAILY  PO
     Route: 048
     Dates: start: 20071219, end: 20071219

REACTIONS (5)
  - CONTUSION [None]
  - EPISTAXIS [None]
  - FALL [None]
  - SKIN LACERATION [None]
  - SOMNAMBULISM [None]
